FAERS Safety Report 21215891 (Version 1)
Quarter: 2022Q3

REPORT INFORMATION
  Report Type: Spontaneous
  Country: CA (occurrence: CA)
  Receive Date: 20220816
  Receipt Date: 20220816
  Transmission Date: 20221027
  Serious: Yes (Other)
  Sender: FDA-Public Use
  Company Number: None

PATIENT
  Age: 73 Year
  Sex: Female

DRUGS (1)
  1. AMLODIPINE BESYLATE [Suspect]
     Active Substance: AMLODIPINE BESYLATE
     Indication: Product used for unknown indication
     Route: 065

REACTIONS (6)
  - Flushing [Recovered/Resolved]
  - Heart rate increased [Recovered/Resolved]
  - Neuropathy peripheral [Recovered/Resolved]
  - Poor quality product administered [Unknown]
  - Product physical issue [Unknown]
  - Product taste abnormal [Unknown]
